FAERS Safety Report 15634713 (Version 2)
Quarter: 2018Q4

REPORT INFORMATION
  Report Type: Spontaneous
  Country: US (occurrence: US)
  Receive Date: 20181119
  Receipt Date: 20181126
  Transmission Date: 20190205
  Serious: No
  Sender: FDA-Public Use
  Company Number: US-PFIZER INC-2018467331

PATIENT
  Sex: Female

DRUGS (1)
  1. DESVENLAFAXINE SUCCINATE MONOHYDRATE [Suspect]
     Active Substance: DESVENLAFAXINE SUCCINATE
     Dosage: 25 MG, UNK
     Dates: start: 20181024, end: 20181107

REACTIONS (17)
  - Skin burning sensation [Unknown]
  - Insomnia [Unknown]
  - Muscle spasms [Unknown]
  - Diarrhoea [Unknown]
  - Peripheral coldness [Unknown]
  - Discomfort [Unknown]
  - Withdrawal syndrome [Unknown]
  - Malaise [Unknown]
  - Agitation [Unknown]
  - Hypertension [Unknown]
  - Feeling abnormal [Unknown]
  - Nausea [Unknown]
  - Paraesthesia [Unknown]
  - Dry mouth [Unknown]
  - Dizziness [Unknown]
  - Headache [Unknown]
  - Blood pressure fluctuation [Unknown]

NARRATIVE: CASE EVENT DATE: 20181108
